FAERS Safety Report 13287627 (Version 1)
Quarter: 2017Q1

REPORT INFORMATION
  Report Type: Spontaneous
  Country: US (occurrence: US)
  Receive Date: 20170302
  Receipt Date: 20170302
  Transmission Date: 20170428
  Serious: Yes (Other)
  Sender: FDA-Public Use
  Company Number: US-MYLANLABS-2016M1058219

PATIENT

DRUGS (3)
  1. LIDOCAINE. [Concomitant]
     Active Substance: LIDOCAINE
     Indication: ANAESTHESIA
     Dosage: 2%
     Route: 065
  2. DEXAMETHASONE. [Suspect]
     Active Substance: DEXAMETHASONE
     Indication: BACK PAIN
     Dosage: 1.5ML, 4MG/ML
     Route: 008
  3. DEXAMETHASONE. [Suspect]
     Active Substance: DEXAMETHASONE
     Indication: PAIN IN EXTREMITY
     Dosage: 1.5ML, 4MG/ML
     Route: 008

REACTIONS (2)
  - Cauda equina syndrome [Not Recovered/Not Resolved]
  - Spinal cord infarction [Not Recovered/Not Resolved]
